FAERS Safety Report 23084881 (Version 3)
Quarter: 2024Q2

REPORT INFORMATION
  Report Type: Report from Study
  Country: US (occurrence: US)
  Receive Date: 20231019
  Receipt Date: 20240507
  Transmission Date: 20240716
  Serious: Yes (Death, Hospitalization, Other)
  Sender: FDA-Public Use
  Company Number: US-SUN PHARMACEUTICAL INDUSTRIES LTD-2021R1-279658

PATIENT
  Age: 78 Year
  Sex: Female

DRUGS (1)
  1. BOSENTAN [Suspect]
     Active Substance: BOSENTAN
     Indication: Product used for unknown indication
     Dosage: 125 MILLIGRAM, BID
     Route: 048

REACTIONS (4)
  - Seizure [Unknown]
  - Oxygen saturation decreased [Unknown]
  - Back disorder [Unknown]
  - Death [Fatal]

NARRATIVE: CASE EVENT DATE: 20201226
